FAERS Safety Report 9553369 (Version 2)
Quarter: 2013Q3

REPORT INFORMATION
  Report Type: Spontaneous
  Country: US (occurrence: US)
  Receive Date: 20130925
  Receipt Date: 20130925
  Transmission Date: 20140515
  Serious: No
  Sender: FDA-Public Use
  Company Number: US-ABBVIE-13P-163-1050436-00

PATIENT
  Age: 58 Year
  Sex: Female
  Weight: 88.53 kg

DRUGS (6)
  1. VICODIN HP 10/660 [Suspect]
     Indication: BURSITIS
     Dosage: 10/660 AS REQUIRED
     Dates: start: 201211, end: 201212
  2. VICODIN HP 10/660 [Suspect]
     Indication: BACK PAIN
  3. VICODIN HP 10/660 [Suspect]
     Indication: FIBROMYALGIA
  4. VICODIN HP 10/300 (MIKART) [Suspect]
     Indication: BURSITIS
     Dosage: 10/300 AS REQUIRED
     Dates: start: 20130110, end: 20130110
  5. VICODIN HP 10/300 (MIKART) [Suspect]
     Indication: BACK PAIN
  6. VICODIN HP 10/300 (MIKART) [Suspect]
     Indication: FIBROMYALGIA

REACTIONS (16)
  - Expired drug administered [Recovered/Resolved]
  - Oedema peripheral [Recovering/Resolving]
  - Pain in extremity [Recovering/Resolving]
  - Pain in extremity [Recovering/Resolving]
  - Anaemia [Recovering/Resolving]
  - Cellulitis [Unknown]
  - Swollen tongue [Recovered/Resolved]
  - Gastroenteritis viral [Recovered/Resolved]
  - Respiratory tract congestion [Recovered/Resolved]
  - Diarrhoea [Recovered/Resolved]
  - Mobility decreased [Recovering/Resolving]
  - Skin mass [Recovering/Resolving]
  - Lymphorrhoea [Unknown]
  - Hypersensitivity [Recovering/Resolving]
  - Vomiting [Recovered/Resolved]
  - Rash [Recovering/Resolving]
